FAERS Safety Report 4300719-7 (Version None)
Quarter: 2004Q1

REPORT INFORMATION
  Report Type: 
  Country: None (occurrence: None)
  Receive Date: 20040218
  Receipt Date: 20040205
  Transmission Date: 20041129
  Serious: Yes (Other)
  Sender: FDA-Public Use
  Company Number: US-JNJFOC-20040202289

PATIENT
  Age: 40 Year
  Sex: Female
  Weight: 72.5755 kg

DRUGS (7)
  1. ORTHO EVRA [Suspect]
     Indication: DRUG USE FOR UNKNOWN INDICATION
     Dosage: 1 DOSE (S), 3 IN 4 WEEK, TRANSDERMAL
     Route: 062
     Dates: start: 20030701
  2. STEROID (CORTICOSTEROID NOS) [Concomitant]
  3. SINGULAIR [Concomitant]
  4. SPIRONOLACTONE [Concomitant]
  5. CLARITIN [Concomitant]
  6. MINOCYCLINE HCL [Concomitant]
  7. ADVAIR (SERETIDE MITE) [Concomitant]

REACTIONS (5)
  - APPLICATION SITE DESQUAMATION [None]
  - APPLICATION SITE REACTION [None]
  - APPLICATION SITE URTICARIA [None]
  - APPLICATION SITE VESICLES [None]
  - BURNING SENSATION [None]
